FAERS Safety Report 16967239 (Version 1)
Quarter: 2019Q4

REPORT INFORMATION
  Report Type: Report from Study
  Country: ES (occurrence: ES)
  Receive Date: 20191028
  Receipt Date: 20191028
  Transmission Date: 20200122
  Serious: Yes (Hospitalization)
  Sender: FDA-Public Use
  Company Number: ES-MYLANLABS-2019M1101128

PATIENT
  Age: 85 Year
  Sex: Female

DRUGS (4)
  1. SINTROM [Concomitant]
     Active Substance: ACENOCOUMAROL
     Dosage: SP
     Route: 048
     Dates: start: 20170131, end: 20180331
  2. TORASEMIDE [Suspect]
     Active Substance: TORSEMIDE
     Indication: CARDIAC FAILURE
     Dosage: 10 MD DIA
     Route: 048
     Dates: start: 20180316
  3. CIPROFLOXACINO                     /00697201/ [Concomitant]
     Active Substance: CIPROFLOXACIN
     Dosage: 500 MG DIA
     Route: 048
     Dates: start: 20180323, end: 20180329
  4. ALDACTONE [Interacting]
     Active Substance: SPIRONOLACTONE
     Indication: CARDIAC FAILURE
     Dosage: 25 MILLIGRAM, QD (1-0-0)
     Route: 048
     Dates: start: 20180316, end: 20180331

REACTIONS (2)
  - Drug interaction [Unknown]
  - Hyponatraemia [Recovered/Resolved]

NARRATIVE: CASE EVENT DATE: 20180331
